FAERS Safety Report 7458852-7 (Version None)
Quarter: 2011Q2

REPORT INFORMATION
  Report Type: 
  Country: None (occurrence: None)
  Receive Date: 20110504
  Receipt Date: 20110421
  Transmission Date: 20111010
  Serious: Yes (Other)
  Sender: FDA-Public Use
  Company Number: DE-MYLANLABS-2011S1008565

PATIENT
  Sex: Male

DRUGS (5)
  1. ETOPOSIDE [Suspect]
     Dosage: 500 MG/M2 FOR 3 DAYS.
     Route: 065
  2. CARBOPLATIN [Suspect]
     Dosage: 500 MG/M2 FOR 3 DAYS
     Route: 065
  3. ETOPOSIDE [Suspect]
     Indication: MEDULLOBLASTOMA RECURRENT
     Dosage: DAILY 100 MG/M2 FOR 4 DAYS
     Route: 065
  4. ETOPOSIDE [Suspect]
     Route: 048
  5. CARBOPLATIN [Suspect]
     Indication: MEDULLOBLASTOMA RECURRENT
     Dosage: DAILY 200 MG/M2 FOR 4 DAYS
     Route: 065

REACTIONS (5)
  - NAUSEA [None]
  - VOMITING [None]
  - DEAFNESS [None]
  - ABDOMINAL PAIN UPPER [None]
  - TINNITUS [None]
